FAERS Safety Report 12935742 (Version 1)
Quarter: 2016Q4

REPORT INFORMATION
  Report Type: Report from Study
  Country: MX (occurrence: MX)
  Receive Date: 20161114
  Receipt Date: 20161114
  Transmission Date: 20170207
  Serious: Yes (Disabling)
  Sender: FDA-Public Use
  Company Number: MX-ROCHE-1413727

PATIENT
  Age: 38 Year
  Sex: Female
  Weight: 78 kg

DRUGS (11)
  1. ACETAMINOPHEN. [Concomitant]
     Active Substance: ACETAMINOPHEN
     Indication: RHEUMATOID ARTHRITIS
     Route: 048
     Dates: start: 2012
  2. CELEBREX [Concomitant]
     Active Substance: CELECOXIB
     Indication: RHEUMATOID ARTHRITIS
     Route: 048
     Dates: start: 2012
  3. PREDNISONE. [Concomitant]
     Active Substance: PREDNISONE
     Indication: RHEUMATOID ARTHRITIS
     Route: 048
     Dates: start: 2012
  4. ARAVA [Concomitant]
     Active Substance: LEFLUNOMIDE
     Indication: RHEUMATOID ARTHRITIS
     Route: 048
     Dates: start: 2012
  5. ROACTEMRA [Suspect]
     Active Substance: TOCILIZUMAB
     Route: 042
     Dates: start: 20140407, end: 201609
  6. CHLOROQUINE. [Concomitant]
     Active Substance: CHLOROQUINE
     Indication: RHEUMATOID ARTHRITIS
     Route: 048
     Dates: start: 2012
  7. ROACTEMRA [Suspect]
     Active Substance: TOCILIZUMAB
     Indication: RHEUMATOID ARTHRITIS
     Route: 042
     Dates: start: 201403
  8. NAPROXEN. [Concomitant]
     Active Substance: NAPROXEN
     Indication: RHEUMATOID ARTHRITIS
     Route: 048
     Dates: start: 2012
  9. FOLIC ACID. [Concomitant]
     Active Substance: FOLIC ACID
     Indication: RHEUMATOID ARTHRITIS
     Route: 048
     Dates: start: 2012
  10. METHOTREXATE. [Concomitant]
     Active Substance: METHOTREXATE
     Indication: RHEUMATOID ARTHRITIS
     Dosage: FRIDAY, SATURDAY AND SUNDAY
     Route: 048
  11. ORLISTAT [Concomitant]
     Active Substance: ORLISTAT
     Indication: WEIGHT INCREASED
     Route: 048
     Dates: start: 201405

REACTIONS (9)
  - Drug ineffective [Unknown]
  - Fatigue [Recovered/Resolved]
  - Stress [Recovered/Resolved]
  - Disease progression [Unknown]
  - Headache [Recovered/Resolved]
  - Intentional product misuse [Unknown]
  - Ligament sprain [Not Recovered/Not Resolved]
  - Pain in extremity [Not Recovered/Not Resolved]
  - Fall [Unknown]

NARRATIVE: CASE EVENT DATE: 201403
